FAERS Safety Report 5154362-0 (Version None)
Quarter: 2006Q4

REPORT INFORMATION
  Report Type: 
  Country: None (occurrence: None)
  Receive Date: 20061114
  Receipt Date: 20061030
  Transmission Date: 20070319
  Serious: Yes (Disabling, Other)
  Sender: FDA-Public Use
  Company Number: 2004033064

PATIENT
  Age: 29 Year
  Sex: Female

DRUGS (4)
  1. VFEND [Suspect]
     Indication: BRONCHOPULMONARY ASPERGILLOSIS
     Dosage: 400 MG (200 MG, 2 IN 1 D), ORAL
     Route: 048
     Dates: start: 20030620, end: 20040301
  2. MYCOPHENOLATE MOFETIL [Suspect]
     Indication: LUNG TRANSPLANT
     Dosage: 1.5 GRAM, ORAL
     Route: 048
     Dates: start: 20020501, end: 20040301
  3. CYCLOSPORINE [Suspect]
     Indication: LUNG TRANSPLANT
     Dosage: 140 MG, ORAL
     Route: 048
     Dates: start: 20020501
  4. PREDNISONE TAB [Suspect]
     Indication: LUNG TRANSPLANT
     Dosage: 10 MG, ORAL
     Route: 048
     Dates: start: 20020501

REACTIONS (7)
  - BRONCHOPULMONARY ASPERGILLOSIS [None]
  - CHOLANGITIS [None]
  - CHOLECYSTITIS [None]
  - CHOLELITHIASIS [None]
  - DRUG INTERACTION [None]
  - SPHINCTER OF ODDI DYSFUNCTION [None]
  - THERAPY NON-RESPONDER [None]
